FAERS Safety Report 8814108 (Version 1)
Quarter: 2012Q4

REPORT INFORMATION
  Report Type: Spontaneous
  Country: US (occurrence: None)
  Receive Date: 20120926
  Receipt Date: 20120926
  Transmission Date: 20130627
  Serious: Yes (Life-Threatening, Hospitalization)
  Sender: FDA-Public Use
  Company Number: None

PATIENT
  Age: 73 Year
  Sex: Female
  Weight: 68.04 kg

DRUGS (1)
  1. DYSPORT [Suspect]
     Indication: PERIORBITAL DISORDER
     Dosage: 3 injection each eye, 3 times, injection
     Dates: start: 20120327, end: 20120405

REACTIONS (7)
  - Dysphonia [None]
  - Throat irritation [None]
  - Visual impairment [None]
  - Asthenia [None]
  - Botulism [None]
  - Lyme disease [None]
  - Apparent death [None]
